FAERS Safety Report 15867350 (Version 1)
Quarter: 2019Q1

REPORT INFORMATION
  Report Type: Spontaneous
  Country: US (occurrence: US)
  Receive Date: 20190102
  Receipt Date: 20190102
  Transmission Date: 20190417
  Serious: No
  Sender: FDA-Public Use
  Company Number: None

PATIENT
  Age: 64 Year
  Sex: Female

DRUGS (1)
  1. STELARA [Suspect]
     Active Substance: USTEKINUMAB
     Dates: start: 20180221

REACTIONS (4)
  - Respiratory tract congestion [None]
  - Vision blurred [None]
  - Therapy cessation [None]
  - Nasopharyngitis [None]

NARRATIVE: CASE EVENT DATE: 20180221
